FAERS Safety Report 5141418-1 (Version None)
Quarter: 2006Q4

REPORT INFORMATION
  Report Type: 
  Country: None (occurrence: None)
  Receive Date: 20061101
  Receipt Date: 20061025
  Transmission Date: 20070319
  Serious: Yes (Disabling)
  Sender: FDA-Public Use
  Company Number: GB-GLAXOSMITHKLINE-B0444794A

PATIENT
  Age: 50 Year
  Sex: Male

DRUGS (9)
  1. ROSIGLITAZONE [Suspect]
     Dosage: 4MG UNKNOWN
     Route: 048
     Dates: start: 20060626, end: 20060706
  2. AMLODIPINE [Concomitant]
  3. AVANDAMET [Concomitant]
     Route: 048
     Dates: start: 20060615, end: 20060706
  4. FLUTICASONE PROPIONATE [Concomitant]
     Route: 055
  5. METFORMIN HCL [Concomitant]
     Dosage: 850MG TWICE PER DAY
     Route: 048
     Dates: start: 20060615
  6. PREDNISOLONE [Concomitant]
  7. RISEDRONATE SODIUM [Concomitant]
  8. ROSUVASTATIN [Concomitant]
     Indication: BLOOD CHOLESTEROL INCREASED
     Route: 048
  9. SALBUTAMOL [Concomitant]

REACTIONS (2)
  - HEPATOTOXICITY [None]
  - LIVER FUNCTION TEST ABNORMAL [None]
